FAERS Safety Report 8039699-X (Version None)
Quarter: 2012Q1

REPORT INFORMATION
  Report Type: 
  Country: None (occurrence: None)
  Receive Date: 20120111
  Receipt Date: 20111220
  Transmission Date: 20120608
  Serious: No
  Sender: FDA-Public Use
  Company Number: US-AMGEN-USASP2011062242

PATIENT
  Age: 63 Year
  Sex: Female

DRUGS (23)
  1. ZOCOR [Concomitant]
  2. PROTONIX [Concomitant]
  3. IBUPROFEN [Concomitant]
     Dosage: UNK
  4. CHOLECALCIFEROL [Concomitant]
     Dosage: UNK
  5. NORVASC [Concomitant]
  6. CALCIUM WITH VITAMIN D [Concomitant]
  7. ASPIRIN [Concomitant]
  8. LEVOTHYROXINE SODIUM [Concomitant]
  9. ATENOLOL [Concomitant]
  10. BIOTIN [Concomitant]
  11. VITAMIN C [Concomitant]
  12. NITROGLYCERIN [Concomitant]
  13. ALBUTEROL [Concomitant]
  14. FOLIC ACID [Concomitant]
  15. ALLEGRA [Concomitant]
  16. METHOTREXATE [Concomitant]
     Dosage: 2.5 MG,8, ONE DAY A WEEK
     Route: 048
  17. IRON COMPOUND [Concomitant]
  18. FISH OIL [Concomitant]
  19. PREDNISONE TAB [Concomitant]
     Dosage: 5 MG, PRN
  20. RYBIX [Concomitant]
     Dosage: UNK
  21. ENBREL [Suspect]
     Indication: PRODUCT USED FOR UNKNOWN INDICATION
     Dosage: 25 MG, 2 TIMES/WK
     Route: 058
     Dates: start: 20110901
  22. SINGULAIR [Concomitant]
  23. VITAMIN B-12 [Concomitant]

REACTIONS (1)
  - SINUSITIS [None]
